FAERS Safety Report 16944591 (Version 1)
Quarter: 2019Q4

REPORT INFORMATION
  Report Type: Spontaneous
  Country: FR (occurrence: FR)
  Receive Date: 20191022
  Receipt Date: 20191022
  Transmission Date: 20200122
  Serious: Yes (Other)
  Sender: FDA-Public Use
  Company Number: FR-ACCORD-158589

PATIENT
  Age: 63 Year
  Sex: Male
  Weight: 79.5 kg

DRUGS (4)
  1. CISPLATIN. [Suspect]
     Active Substance: CISPLATIN
     Indication: BRONCHIAL CARCINOMA
     Dosage: 50 MG / M2, 3 TO 6 WEEKS
     Route: 041
     Dates: start: 20190103, end: 201904
  2. VINORELBINE [Suspect]
     Active Substance: VINORELBINE TARTRATE
     Indication: BRONCHIAL CARCINOMA
     Dosage: 25 MG / M2 ON THE 1ST AND 5TH DAY EVERY 3 WEEKS
     Route: 041
     Dates: start: 20190103, end: 20190417
  3. IMFINZI [Suspect]
     Active Substance: DURVALUMAB
     Indication: BRONCHIAL CARCINOMA
     Route: 041
     Dates: start: 20190823
  4. IMFINZI [Suspect]
     Active Substance: DURVALUMAB
     Indication: BRONCHIAL CARCINOMA
     Dosage: DATE AND TIME OF LAST ADMINISTRATION: 01-JUL-2019
     Route: 041
     Dates: start: 20190508

REACTIONS (4)
  - Dyspnoea [Recovering/Resolving]
  - Dry mouth [Not Recovered/Not Resolved]
  - Xerophthalmia [Not Recovered/Not Resolved]
  - Peripheral sensory neuropathy [Not Recovered/Not Resolved]

NARRATIVE: CASE EVENT DATE: 20190515
